FAERS Safety Report 14774938 (Version 3)
Quarter: 2019Q4

REPORT INFORMATION
  Report Type: Spontaneous
  Country: US (occurrence: US)
  Receive Date: 20180418
  Receipt Date: 20191122
  Transmission Date: 20200122
  Serious: Yes (Other)
  Sender: FDA-Public Use
  Company Number: US-ASTRAZENECA-2018SE47312

PATIENT
  Age: 24572 Day
  Sex: Female

DRUGS (31)
  1. NEXIUM [Suspect]
     Active Substance: ESOMEPRAZOLE MAGNESIUM
     Indication: ABDOMINAL PAIN UPPER
     Route: 048
     Dates: start: 2013, end: 2015
  2. PREMARIN [Concomitant]
     Active Substance: ESTROGENS, CONJUGATED
  3. CIMETIDINE [Concomitant]
     Active Substance: CIMETIDINE
  4. MONTELUKAST [Concomitant]
     Active Substance: MONTELUKAST SODIUM
  5. NEXIUM [Suspect]
     Active Substance: ESOMEPRAZOLE MAGNESIUM
     Indication: ABDOMINAL PAIN UPPER
     Route: 048
     Dates: start: 2001, end: 2016
  6. LISINOPRIL. [Concomitant]
     Active Substance: LISINOPRIL
  7. DIAZEPAM. [Concomitant]
     Active Substance: DIAZEPAM
  8. DICLOFENAC SODIUM. [Concomitant]
     Active Substance: DICLOFENAC SODIUM
  9. CEPHALEXIN. [Concomitant]
     Active Substance: CEPHALEXIN
  10. CEFUROXIME. [Concomitant]
     Active Substance: CEFUROXIME
  11. ZANTAC [Concomitant]
     Active Substance: RANITIDINE HYDROCHLORIDE
  12. NEXIUM 24HR [Suspect]
     Active Substance: ESOMEPRAZOLE MAGNESIUM
     Route: 048
     Dates: start: 2001, end: 2016
  13. POTASSIUM CL [Concomitant]
     Active Substance: POTASSIUM CHLORIDE
  14. KETOROLAC [Concomitant]
     Active Substance: KETOROLAC TROMETHAMINE
  15. BENADRYL [Concomitant]
     Active Substance: DIPHENHYDRAMINE HYDROCHLORIDE
     Indication: HYPERSENSITIVITY
  16. PROMETHAZINE HCL [Concomitant]
     Active Substance: PROMETHAZINE HYDROCHLORIDE
  17. GABAPENTIN. [Concomitant]
     Active Substance: GABAPENTIN
  18. LEVOTHYROXINE. [Concomitant]
     Active Substance: LEVOTHYROXINE
  19. CELEBREX [Concomitant]
     Active Substance: CELECOXIB
  20. KETOROLAC [Concomitant]
     Active Substance: KETOROLAC TROMETHAMINE
  21. CYMBALTA [Concomitant]
     Active Substance: DULOXETINE HYDROCHLORIDE
  22. COMBIVENT [Concomitant]
     Active Substance: ALBUTEROL SULFATE\IPRATROPIUM BROMIDE
  23. FUROSEMIDE. [Concomitant]
     Active Substance: FUROSEMIDE
  24. LEVAQUIN [Concomitant]
     Active Substance: LEVOFLOXACIN
  25. TUMS [Concomitant]
     Active Substance: CALCIUM CARBONATE
     Dosage: SOMETIMES
  26. SIMVASTATIN. [Concomitant]
     Active Substance: SIMVASTATIN
  27. ZOLPIDEM TARTRATE. [Concomitant]
     Active Substance: ZOLPIDEM TARTRATE
  28. ALLOPURINOL. [Concomitant]
     Active Substance: ALLOPURINOL
  29. HYDROCODON-APAP [Concomitant]
  30. CYANOCOBALAMIN. [Concomitant]
     Active Substance: CYANOCOBALAMIN
  31. VESICARE [Concomitant]
     Active Substance: SOLIFENACIN SUCCINATE

REACTIONS (2)
  - Renal failure [Not Recovered/Not Resolved]
  - Chronic kidney disease [Unknown]

NARRATIVE: CASE EVENT DATE: 20160425
